FAERS Safety Report 5019153-X (Version None)
Quarter: 2006Q2

REPORT INFORMATION
  Report Type: 
  Country: None (occurrence: None)
  Receive Date: 20060531
  Receipt Date: 20060517
  Transmission Date: 20061013
  Serious: Yes (Hospitalization)
  Sender: FDA-Public Use
  Company Number: 225224

PATIENT
  Age: 30 Year
  Sex: Female

DRUGS (1)
  1. RAPTIVA [Suspect]
     Indication: PSORIASIS
     Dosage: 0.05 ML, 1/WEEK, SUBCUTANEOUS
     Route: 058
     Dates: start: 20051229, end: 20060117

REACTIONS (4)
  - CARPAL TUNNEL SYNDROME [None]
  - PAIN [None]
  - PSORIATIC ARTHROPATHY [None]
  - SYNOVITIS [None]
